FAERS Safety Report 19061940 (Version 3)
Quarter: 2021Q4

REPORT INFORMATION
  Report Type: Other
  Country: US (occurrence: US)
  Receive Date: 20210325
  Receipt Date: 20211220
  Transmission Date: 20220303
  Serious: No
  Sender: FDA-Public Use
  Company Number: US-NEUROCRINE BIOSCIENCES INC.-2021NBI01237

PATIENT

DRUGS (6)
  1. ONGENTYS [Suspect]
     Active Substance: OPICAPONE
     Indication: Parkinson^s disease
     Dosage: 50 MILLIGRAM, QD
     Route: 048
     Dates: start: 20201015, end: 202101
  2. COENZYME Q10 [Concomitant]
     Active Substance: DIETARY SUPPLEMENT\UBIDECARENONE
     Dosage: UNK
     Route: 065
  3. CARBIDOPA\LEVODOPA [Concomitant]
     Active Substance: CARBIDOPA\LEVODOPA
     Dosage: UNK
  4. SINEMET [Concomitant]
     Active Substance: CARBIDOPA\LEVODOPA
     Dosage: UNK
  5. DIETARY SUPPLEMENT\UBIDECARENONE [Concomitant]
     Active Substance: DIETARY SUPPLEMENT\UBIDECARENONE
     Dosage: UNK
  6. B-COMPLEX [VITAMIN B COMPLEX] [Concomitant]
     Dosage: UNK

REACTIONS (1)
  - Constipation [Recovered/Resolved]
